FAERS Safety Report 25660617 (Version 1)
Quarter: 2025Q3

REPORT INFORMATION
  Report Type: Spontaneous
  Country: US (occurrence: None)
  Receive Date: 20250808
  Receipt Date: 20250808
  Transmission Date: 20251021
  Serious: Yes (Hospitalization)
  Sender: FDA-CTU
  Company Number: None

PATIENT
  Age: 82 Year
  Sex: Male

DRUGS (1)
  1. SUNITINIB [Suspect]
     Active Substance: SUNITINIB

REACTIONS (10)
  - Hypersensitivity [None]
  - Jaundice [None]
  - Mouth ulceration [None]
  - Soft tissue disorder [None]
  - Pulse abnormal [None]
  - Blood pressure fluctuation [None]
  - Fatigue [None]
  - Asthenia [None]
  - Fall [None]
  - Therapy cessation [None]
